FAERS Safety Report 7471299-2 (Version None)
Quarter: 2011Q2

REPORT INFORMATION
  Report Type: 
  Country: None (occurrence: None)
  Receive Date: 20110510
  Receipt Date: 20110503
  Transmission Date: 20111010
  Serious: Yes (Other)
  Sender: FDA-Public Use
  Company Number: US-ABBOTT-11P-163-0723685-00

PATIENT
  Sex: Male
  Weight: 93.07 kg

DRUGS (7)
  1. HUMIRA [Suspect]
     Indication: PSORIATIC ARTHROPATHY
     Dates: start: 20080101, end: 20110131
  2. TRAMADOL HCL [Concomitant]
     Indication: PAIN
  3. TRAMADOL HCL [Concomitant]
     Indication: ARTHRALGIA
  4. CRESTOR [Concomitant]
     Indication: BLOOD CHOLESTEROL INCREASED
  5. HUMIRA [Suspect]
     Indication: PSORIASIS
  6. RAMIPRIL [Concomitant]
     Indication: CARDIAC DISORDER
  7. RAMIPRIL [Concomitant]
     Indication: HYPERTENSION

REACTIONS (9)
  - CHRONIC LYMPHOCYTIC LEUKAEMIA [None]
  - B-CELL SMALL LYMPHOCYTIC LYMPHOMA [None]
  - ABDOMINAL PAIN UPPER [None]
  - SPLENOMEGALY [None]
  - WHITE BLOOD CELL COUNT INCREASED [None]
  - NASOPHARYNGITIS [None]
  - FATIGUE [None]
  - PLATELET COUNT DECREASED [None]
  - BRONCHITIS [None]
